FAERS Safety Report 6493567-3 (Version None)
Quarter: 2009Q4

REPORT INFORMATION
  Report Type: 
  Country: None (occurrence: None)
  Receive Date: 20091209
  Receipt Date: 20091123
  Transmission Date: 20100525
  Serious: Yes (Death, Hospitalization)
  Sender: FDA-Public Use
  Company Number: FRNAB-09-0553

PATIENT

DRUGS (3)
  1. ABRAXANE [Suspect]
     Indication: BREAST CANCER
  2. VINORELBINE [Concomitant]
     Indication: BREAST CANCER
  3. ZOMETA [Suspect]
     Indication: METASTASES TO LIVER

REACTIONS (2)
  - HEPATIC FAILURE [None]
  - PANCYTOPENIA [None]
